FAERS Safety Report 20307961 (Version 1)
Quarter: 2022Q1

REPORT INFORMATION
  Report Type: Report from Study
  Country: CN (occurrence: CN)
  Receive Date: 20220107
  Receipt Date: 20220107
  Transmission Date: 20220423
  Serious: Yes (Other)
  Sender: FDA-Public Use
  Company Number: CN-Accord-249222

PATIENT
  Age: 59 Year
  Sex: Male

DRUGS (1)
  1. DECITABINE [Suspect]
     Active Substance: DECITABINE
     Indication: Myelodysplastic syndrome
     Dosage: 5-DAY REGIMEN 15 MG/(M2.D)*5 D
     Route: 042

REACTIONS (4)
  - Pneumonia [Unknown]
  - Urinary tract infection [Unknown]
  - Cardiac failure [Unknown]
  - Liver injury [Unknown]
